FAERS Safety Report 6202668-6 (Version None)
Quarter: 2009Q2

REPORT INFORMATION
  Report Type: 
  Country: None (occurrence: None)
  Receive Date: 20090526
  Receipt Date: 20090520
  Transmission Date: 20091009
  Serious: Yes (Life-Threatening)
  Sender: FDA-Public Use
  Company Number: US-DENTSPLY-2009-0035-EUR

PATIENT
  Age: 60 Year
  Sex: Female
  Weight: 72.64 kg

DRUGS (3)
  1. ORAQIX [Suspect]
     Dates: start: 20090520, end: 20090520
  2. LEVOTHYROXINE SODIUM [Concomitant]
  3. ATENOLOL [Concomitant]

REACTIONS (9)
  - BLOOD PRESSURE IMMEASURABLE [None]
  - DYSPNOEA [None]
  - ERYTHEMA [None]
  - HYPERSENSITIVITY [None]
  - HYPOTENSION [None]
  - IRRITABILITY [None]
  - MALAISE [None]
  - MYDRIASIS [None]
  - PULSE ABSENT [None]
